FAERS Safety Report 4655633-4 (Version None)
Quarter: 2005Q2

REPORT INFORMATION
  Report Type: 
  Country: None (occurrence: None)
  Receive Date: 20050505
  Receipt Date: 20050422
  Transmission Date: 20051028
  Serious: Yes (Hospitalization, Other)
  Sender: FDA-Public Use
  Company Number: KII-2005-0016286

PATIENT
  Age: 45 Year
  Sex: Female

DRUGS (7)
  1. MORPHINE SULFATE [Suspect]
     Indication: PAIN
     Dosage: ORAL
     Route: 048
  2. BENZODIAZEPINE DERIVATIVES() [Suspect]
     Dosage: ORAL
     Route: 048
  3. CARISOPRODOL [Suspect]
     Dosage: ORAL
     Route: 048
  4. TRAMADOL HCL [Suspect]
     Dosage: ORAL
     Route: 048
  5. ACETAMINOPHEN AND HYDROCODONE BITARTRATE [Suspect]
     Dosage: ORAL
     Route: 048
  6. METHYLPHENIDATE HCL [Suspect]
     Dosage: ORAL
     Route: 048
  7. COCAINE (COCAINE) [Suspect]

REACTIONS (7)
  - DRUG ABUSER [None]
  - DRUG SCREEN POSITIVE [None]
  - LOSS OF CONSCIOUSNESS [None]
  - MIOSIS [None]
  - RESPIRATORY RATE INCREASED [None]
  - SINUS TACHYCARDIA [None]
  - TREMOR [None]
